FAERS Safety Report 9321149 (Version 1)
Quarter: 2013Q2

REPORT INFORMATION
  Report Type: Spontaneous
  Country: CA (occurrence: None)
  Receive Date: 20130528
  Receipt Date: 20130528
  Transmission Date: 20140414
  Serious: Yes (Other)
  Sender: FDA-Public Use
  Company Number: 2013AP005433

PATIENT
  Sex: Female

DRUGS (2)
  1. RISPERIDONE (RISPERIDONE) [Suspect]
  2. CLOZAPINE [Suspect]

REACTIONS (2)
  - Neuroleptic malignant syndrome [None]
  - Neutrophil count increased [None]
